FAERS Safety Report 18451912 (Version 1)
Quarter: 2020Q4

REPORT INFORMATION
  Report Type: Report from Study
  Country: None (occurrence: MX)
  Receive Date: 20201102
  Receipt Date: 20201102
  Transmission Date: 20210114
  Serious: Yes (Death, Hospitalization)
  Sender: FDA-Public Use
  Company Number: MX-ABBVIE-20K-107-3632995-00

PATIENT
  Sex: Male
  Weight: 63 kg

DRUGS (1)
  1. HUMIRA [Suspect]
     Active Substance: ADALIMUMAB
     Indication: RHEUMATOID ARTHRITIS
     Route: 058
     Dates: start: 20150722

REACTIONS (12)
  - Gallbladder disorder [Fatal]
  - Pain [Unknown]
  - Myocardial infarction [Fatal]
  - Enteritis [Fatal]
  - Suspected COVID-19 [Fatal]
  - Rheumatoid arthritis [Fatal]
  - Blood pressure abnormal [Unknown]
  - Product administered at inappropriate site [Unknown]
  - Rash macular [Unknown]
  - Renal failure [Fatal]
  - Therapeutic product effect decreased [Unknown]
  - Drug ineffective [Unknown]
